FAERS Safety Report 7239172-2 (Version None)
Quarter: 2011Q1

REPORT INFORMATION
  Report Type: 
  Country: None (occurrence: None)
  Receive Date: 20110121
  Receipt Date: 20071219
  Transmission Date: 20110831
  Serious: Yes (Other)
  Sender: FDA-Public Use
  Company Number: PHHY2007JP03796

PATIENT
  Age: 69 Year
  Sex: Female
  Weight: 50.1 kg

DRUGS (8)
  1. CYCLOSPORINE [Suspect]
     Dosage: 150 MG/DAY
  2. POLYGAM S/D [Concomitant]
     Dosage: 20 G, X 5 DAYS
  3. CYCLOSPORINE [Suspect]
     Indication: DERMATOMYOSITIS
     Dosage: 100 MG/DAY
     Route: 048
  4. TACROLIMUS [Concomitant]
     Dosage: 2 MG/DAY
  5. PREDNISOLONE [Concomitant]
     Dosage: 40 MG, UNK
  6. CYCLOPHOSPHAMIDE [Concomitant]
     Dosage: 400 MG/DAY
  7. PREDNISOLONE [Concomitant]
     Indication: POLYARTHRITIS
     Dosage: 10 MG
  8. METHYLPREDNISOLONE ACETATE [Concomitant]
     Dosage: 500 MG, UNK

REACTIONS (2)
  - HEPATIC FUNCTION ABNORMAL [None]
  - PANCYTOPENIA [None]
